FAERS Safety Report 15110812 (Version 1)
Quarter: 2018Q3

REPORT INFORMATION
  Report Type: Spontaneous
  Country: US (occurrence: US)
  Receive Date: 20180705
  Receipt Date: 20180705
  Transmission Date: 20181010
  Serious: No
  Sender: FDA-Public Use
  Company Number: US-SA-2018SA157504

PATIENT
  Age: 49 Year
  Sex: Female

DRUGS (1)
  1. INSULIN GLARGINE [Suspect]
     Active Substance: INSULIN GLARGINE

REACTIONS (4)
  - Nasopharyngitis [Unknown]
  - Drug dose omission [Unknown]
  - Device malfunction [Unknown]
  - Intentional product misuse [Unknown]
